FAERS Safety Report 7796154-X (Version None)
Quarter: 2011Q4

REPORT INFORMATION
  Report Type: 
  Country: None (occurrence: None)
  Receive Date: 20111004
  Receipt Date: 20110928
  Transmission Date: 20120403
  Serious: Yes (Other)
  Sender: FDA-Public Use
  Company Number: GB-ALLERGAN-1112874US

PATIENT
  Sex: Female

DRUGS (1)
  1. CELLUVISCA? [Suspect]
     Indication: PRODUCT USED FOR UNKNOWN INDICATION
     Dosage: UNK
     Route: 047

REACTIONS (5)
  - SUPERFICIAL INJURY OF EYE [None]
  - EYE PAIN [None]
  - SCRATCH [None]
  - VISUAL IMPAIRMENT [None]
  - FOREIGN BODY IN EYE [None]
